FAERS Safety Report 18596103 (Version 2)
Quarter: 2020Q4

REPORT INFORMATION
  Report Type: Spontaneous
  Country: US (occurrence: US)
  Receive Date: 20201209
  Receipt Date: 20201211
  Transmission Date: 20210114
  Serious: No
  Sender: FDA-Public Use
  Company Number: US-JNJFOC-20201148057

PATIENT

DRUGS (1)
  1. MENS ROGAINE EXTRA STRENGTH [Suspect]
     Active Substance: MINOXIDIL
     Indication: HAIR GROWTH ABNORMAL
     Route: 061

REACTIONS (5)
  - Product use in unapproved indication [Unknown]
  - Poor quality product administered [Unknown]
  - Product formulation issue [Unknown]
  - Product administered at inappropriate site [Unknown]
  - Dermatitis [Unknown]
